FAERS Safety Report 10031409 (Version 1)
Quarter: 2014Q1

REPORT INFORMATION
  Report Type: Spontaneous
  Country: IT (occurrence: IT)
  Receive Date: 20140324
  Receipt Date: 20140324
  Transmission Date: 20141002
  Serious: Yes (Hospitalization)
  Sender: FDA-Public Use
  Company Number: IT-RANBAXY-2014RR-79248

PATIENT
  Age: 67 Year
  Sex: Female

DRUGS (2)
  1. PARACETAMOL [Suspect]
     Indication: INFLUENZA
     Dosage: 1 G, COMPLETE
     Route: 048
     Dates: start: 20140305, end: 20140305
  2. NIMESULIDE [Suspect]
     Indication: INFLUENZA
     Dosage: 100 MG, COMPLETE
     Route: 048
     Dates: start: 20140306, end: 20140306

REACTIONS (1)
  - Syncope [Not Recovered/Not Resolved]
